FAERS Safety Report 7642764-X (Version None)
Quarter: 2011Q3

REPORT INFORMATION
  Report Type: 
  Country: None (occurrence: None)
  Receive Date: 20110728
  Receipt Date: 20110720
  Transmission Date: 20111222
  Serious: Yes (Other)
  Sender: FDA-Public Use
  Company Number: PHHY2011GB05907

PATIENT

DRUGS (2)
  1. CARDICOR [Concomitant]
  2. DOCETAXEL [Suspect]
     Dosage: 80 MG, UNK
     Dates: start: 20110125, end: 20110125

REACTIONS (1)
  - WRONG TECHNIQUE IN DRUG USAGE PROCESS [None]
